FAERS Safety Report 19988422 (Version 3)
Quarter: 2021Q4

REPORT INFORMATION
  Report Type: Report from Study
  Country: KR (occurrence: KR)
  Receive Date: 20211022
  Receipt Date: 20211110
  Transmission Date: 20220303
  Serious: Yes (Hospitalization)
  Sender: FDA-Public Use
  Company Number: KR-ABBVIE-21K-090-4130340-00

PATIENT
  Age: 58 Year
  Sex: Female
  Weight: 56 kg

DRUGS (15)
  1. GLECAPREVIR\PIBRENTASVIR [Suspect]
     Active Substance: GLECAPREVIR\PIBRENTASVIR
     Indication: Chronic hepatitis C
     Route: 048
     Dates: start: 20190718, end: 201908
  2. GLECAPREVIR\PIBRENTASVIR [Suspect]
     Active Substance: GLECAPREVIR\PIBRENTASVIR
     Route: 048
     Dates: start: 20190807, end: 20190920
  3. CLOSONE [Concomitant]
     Indication: Peripheral arterial occlusive disease
     Route: 048
     Dates: start: 20120831
  4. RENALMIN [Concomitant]
     Indication: Vitamin supplementation
     Route: 048
     Dates: start: 20090424
  5. LIVALO [Concomitant]
     Active Substance: PITAVASTATIN CALCIUM
     Indication: Peripheral arterial occlusive disease
     Route: 048
  6. FEXORIN [Concomitant]
     Indication: Gout
     Route: 048
  7. ENEXIUM [Concomitant]
     Indication: Gastrooesophageal reflux disease
     Route: 048
  8. L-CARN [Concomitant]
     Indication: Peripheral arterial occlusive disease
     Route: 048
     Dates: start: 20110422
  9. GINEXIN-F [Concomitant]
     Indication: Peripheral arterial occlusive disease
     Route: 048
  10. GANAKHAN [Concomitant]
     Indication: Gastrooesophageal reflux disease
     Route: 048
  11. THIOCTACID HR [Concomitant]
     Indication: Peripheral arterial occlusive disease
     Route: 048
  12. FEROBA YOU [Concomitant]
     Indication: End stage renal disease
     Route: 048
  13. CICOR SOFT CAP [Concomitant]
     Indication: Peripheral arterial occlusive disease
     Route: 048
  14. RENVELA [Concomitant]
     Active Substance: SEVELAMER CARBONATE
     Indication: End stage renal disease
     Route: 048
  15. PYRIDOXINE SINIL [Concomitant]
     Indication: Vitamin supplementation
     Route: 048
     Dates: start: 20191029

REACTIONS (1)
  - Pneumonia [Recovered/Resolved]

NARRATIVE: CASE EVENT DATE: 20190802
